FAERS Safety Report 17833226 (Version 1)
Quarter: 2020Q2

REPORT INFORMATION
  Report Type: Spontaneous
  Country: US (occurrence: US)
  Receive Date: 20200527
  Receipt Date: 20200527
  Transmission Date: 20200714
  Serious: Yes (Disabling, Other)
  Sender: FDA-Public Use
  Company Number: None

PATIENT
  Age: 51 Year
  Sex: Male
  Weight: 156.49 kg

DRUGS (12)
  1. METFORMIN [Concomitant]
     Active Substance: METFORMIN HYDROCHLORIDE
  2. MULTIVITAMIN [Concomitant]
     Active Substance: VITAMINS
  3. BETA-CAROTENE [Concomitant]
  4. HUMALOG [Concomitant]
     Active Substance: INSULIN LISPRO
  5. ENTERIC COATED ASPIRIN LOW DOSE 81MG [Concomitant]
  6. JANUVIA [Concomitant]
     Active Substance: SITAGLIPTIN PHOSPHATE
  7. LISINOPRIL. [Concomitant]
     Active Substance: LISINOPRIL
  8. LEVEMIR [Concomitant]
     Active Substance: INSULIN DETEMIR
  9. LEVOTHYROXINE. [Concomitant]
     Active Substance: LEVOTHYROXINE
  10. DIVALPROEX SODIUM ER [Concomitant]
     Active Substance: DIVALPROEX SODIUM
  11. MELATONIN GUMMIES [Concomitant]
  12. ATORVASTATIN (GENERIC FOR LIPITOR) [Suspect]
     Active Substance: ATORVASTATIN CALCIUM
     Indication: BLOOD CHOLESTEROL INCREASED
     Dosage: ?
     Route: 048
     Dates: start: 2018, end: 2020

REACTIONS (4)
  - Arthralgia [None]
  - Muscle spasms [None]
  - Muscle twitching [None]
  - Pain in extremity [None]
